FAERS Safety Report 14943726 (Version 2)
Quarter: 2018Q2

REPORT INFORMATION
  Report Type: Report from Study
  Country: ES (occurrence: ES)
  Receive Date: 20180528
  Receipt Date: 20180601
  Transmission Date: 20180711
  Serious: Yes (Hospitalization)
  Sender: FDA-Public Use
  Company Number: ES-AMGEN-ESPCT2018046449

PATIENT
  Age: 71 Year
  Sex: Male

DRUGS (20)
  1. OXALIPLATIN. [Suspect]
     Active Substance: OXALIPLATIN
     Dosage: 154 MG, Q2WK
     Route: 042
     Dates: start: 20180109
  2. AVAMYS [Concomitant]
     Active Substance: FLUTICASONE FUROATE
     Dosage: 2 INHALATION, Q12H
  3. OPENVAS PLUS [Concomitant]
     Active Substance: HYDROCHLOROTHIAZIDE\OLMESARTAN MEDOXOMIL
     Dosage: 40/25 MG, QD
     Route: 048
  4. LODERM [Concomitant]
     Indication: RASH
     Dosage: UNK
     Route: 061
  5. OXALIPLATIN. [Suspect]
     Active Substance: OXALIPLATIN
     Indication: RECTAL CANCER
     Dosage: 158 MG, Q2WK
     Route: 042
     Dates: start: 20171020
  6. DOXAZOSIN [Concomitant]
     Active Substance: DOXAZOSIN\DOXAZOSIN MESYLATE
     Dosage: 4 MG, QD
     Route: 048
  7. SYMBICORT [Concomitant]
     Active Substance: BUDESONIDE\FORMOTEROL FUMARATE DIHYDRATE
     Dosage: 2 INHALATION, Q8H
  8. 5-FLUOROURACIL [Suspect]
     Active Substance: FLUOROURACIL
     Dosage: 4339 MG, Q2WK
     Route: 042
     Dates: start: 20180111
  9. 5-FLUOROURACIL [Suspect]
     Active Substance: FLUOROURACIL
     Dosage: 723 MG, Q2WK
     Route: 040
     Dates: start: 20180109
  10. LEUCOVORIN. [Suspect]
     Active Substance: LEUCOVORIN
     Dosage: 362 MG, Q2WK
     Route: 042
     Dates: start: 20180109
  11. OMEPRAZOL [Concomitant]
     Active Substance: OMEPRAZOLE
     Indication: PROPHYLAXIS
     Dosage: 20 MG, QD
     Route: 048
  12. AUGMENTIN [Concomitant]
     Active Substance: AMOXICILLIN\CLAVULANATE POTASSIUM
     Indication: URINARY TRACT INFECTION
     Dosage: 875/125 MG, Q8H
     Route: 048
     Dates: start: 20180320, end: 20180402
  13. PANITUMUMAB [Suspect]
     Active Substance: PANITUMUMAB
     Indication: RECTAL CANCER
     Dosage: 468 MG, Q2WK
     Route: 042
     Dates: start: 20171020
  14. LEUCOVORIN. [Suspect]
     Active Substance: LEUCOVORIN
     Indication: RECTAL CANCER
     Dosage: 371 MG, Q2WK
     Route: 042
     Dates: start: 20171020
  15. SINGULAIR [Concomitant]
     Active Substance: MONTELUKAST SODIUM
     Dosage: 10 MG, QD
     Route: 048
  16. 5-FLUOROURACIL [Suspect]
     Active Substance: FLUOROURACIL
     Dosage: 742 MG, Q2WK
     Route: 040
     Dates: start: 20171020
  17. PANITUMUMAB [Suspect]
     Active Substance: PANITUMUMAB
     Dosage: 441 MG, Q2WK
     Route: 042
     Dates: start: 20180109
  18. 5-FLUOROURACIL [Suspect]
     Active Substance: FLUOROURACIL
     Indication: RECTAL CANCER
     Dosage: 4450 MG, Q2WK
     Route: 042
     Dates: start: 20171020
  19. SALBUTAMOL [Concomitant]
     Active Substance: ALBUTEROL
     Dosage: 2 INHALATION, Q8H
  20. HIBOR [Concomitant]
     Active Substance: BEMIPARIN SODIUM
     Indication: THROMBOSIS PROPHYLAXIS
     Dosage: 3500 IU, QD
     Route: 058
     Dates: start: 20180307

REACTIONS (1)
  - Abscess [Recovered/Resolved]

NARRATIVE: CASE EVENT DATE: 20180219
